FAERS Safety Report 4443318-9 (Version None)
Quarter: 2004Q3

REPORT INFORMATION
  Report Type: 
  Country: None (occurrence: None)
  Receive Date: 20040908
  Receipt Date: 20040831
  Transmission Date: 20050211
  Serious: Yes (Other)
  Sender: FDA-Public Use
  Company Number: 200412809JP

PATIENT
  Sex: 0

DRUGS (2)
  1. ARAVA [Suspect]
     Indication: JUVENILE ARTHRITIS
     Route: 048
  2. CORTICOSTEROIDS [Concomitant]

REACTIONS (1)
  - DELUSION [None]
